FAERS Safety Report 8162075-6 (Version None)
Quarter: 2012Q1

REPORT INFORMATION
  Report Type: 
  Country: None (occurrence: None)
  Receive Date: 20120224
  Receipt Date: 20110706
  Transmission Date: 20120608
  Serious: No
  Sender: FDA-Public Use
  Company Number: US-BRISTOL-MYERS SQUIBB COMPANY-15854383

PATIENT
  Age: 81 Year
  Sex: Male

DRUGS (3)
  1. METFORMIN HCL [Suspect]
  2. ASPIRIN [Concomitant]
  3. FISH OIL [Concomitant]

REACTIONS (1)
  - MUSCULOSKELETAL PAIN [None]
